FAERS Safety Report 10746117 (Version 1)
Quarter: 2015Q1

REPORT INFORMATION
  Report Type: Spontaneous
  Country: US (occurrence: US)
  Receive Date: 20150128
  Receipt Date: 20150128
  Transmission Date: 20150721
  Serious: No
  Sender: FDA-Public Use
  Company Number: US-ELI_LILLY_AND_COMPANY-US201501006576

PATIENT
  Sex: Female

DRUGS (1)
  1. CYMBALTA [Suspect]
     Active Substance: DULOXETINE HYDROCHLORIDE
     Indication: ANXIETY
     Route: 065

REACTIONS (5)
  - Headache [Recovered/Resolved]
  - Thinking abnormal [Recovered/Resolved]
  - Insomnia [Recovered/Resolved]
  - Drug withdrawal syndrome [Recovered/Resolved]
  - Abnormal dreams [Recovered/Resolved]
